FAERS Safety Report 5778882-0 (Version None)
Quarter: 2008Q2

REPORT INFORMATION
  Report Type: 
  Country: None (occurrence: None)
  Receive Date: 20080617
  Receipt Date: 20080610
  Transmission Date: 20081010
  Serious: Yes (Death, Hospitalization)
  Sender: FDA-Public Use
  Company Number: 163-21880-08031424

PATIENT
  Age: 64 Year
  Sex: Male

DRUGS (3)
  1. REVLIMID [Suspect]
     Indication: MULTIPLE MYELOMA
     Dosage: 25 MG (DAILY 21/28 DAYS, ORAL; 15 MG TWICE WEEKLY, ORAL
     Route: 048
     Dates: start: 20080215, end: 20080221
  2. REVLIMID [Suspect]
     Indication: MULTIPLE MYELOMA
     Dosage: 25 MG (DAILY 21/28 DAYS, ORAL; 15 MG TWICE WEEKLY, ORAL
     Route: 048
     Dates: start: 20080201
  3. REVLIMID [Suspect]
     Dosage: 15 MG TWICE WEEKLY.ORAL
     Route: 048
     Dates: start: 20080201

REACTIONS (4)
  - DIALYSIS [None]
  - MALIGNANT NEOPLASM PROGRESSION [None]
  - MULTIPLE MYELOMA [None]
  - RENAL FAILURE [None]
